FAERS Safety Report 20691878 (Version 2)
Quarter: 2022Q2

REPORT INFORMATION
  Report Type: Spontaneous
  Country: AT (occurrence: None)
  Receive Date: 20220408
  Receipt Date: 20220504
  Transmission Date: 20220720
  Serious: Yes (Life-Threatening, Other)
  Sender: FDA-Public Use
  Company Number: AT-ROCHE-3068416

PATIENT
  Age: 70 Year
  Sex: Male

DRUGS (2)
  1. GAVRETO [Suspect]
     Active Substance: PRALSETINIB
     Indication: Non-small cell lung cancer
     Route: 048
     Dates: start: 20220128, end: 20220322
  2. CANDESARTAN [Concomitant]
     Active Substance: CANDESARTAN
     Indication: Hypertension
     Route: 048

REACTIONS (3)
  - Endotracheal intubation [Unknown]
  - Bacterial disease carrier [Unknown]
  - Opportunistic infection [Recovered/Resolved with Sequelae]

NARRATIVE: CASE EVENT DATE: 20220322
